FAERS Safety Report 8382786-7 (Version None)
Quarter: 2012Q2

REPORT INFORMATION
  Report Type: 
  Country: None (occurrence: None)
  Receive Date: 20120524
  Receipt Date: 20120510
  Transmission Date: 20120825
  Serious: Yes (Hospitalization)
  Sender: FDA-Public Use
  Company Number: IT-JNJFOC-20120511810

PATIENT
  Age: 46 Year
  Sex: Male

DRUGS (6)
  1. FOLIC ACID [Concomitant]
     Route: 048
     Dates: start: 20080417
  2. LANSOPRAZOLE [Concomitant]
     Route: 048
     Dates: start: 20080417
  3. METHOTREXATE [Suspect]
     Indication: PSORIATIC ARTHROPATHY
     Dates: start: 20080101
  4. REMICADE [Suspect]
     Indication: PSORIATIC ARTHROPATHY
     Route: 042
     Dates: start: 20110914, end: 20111221
  5. MOBIC [Concomitant]
     Route: 048
     Dates: start: 20080417
  6. PREDNISONE TAB [Suspect]
     Indication: PSORIATIC ARTHROPATHY
     Route: 048

REACTIONS (1)
  - BLADDER TRANSITIONAL CELL CARCINOMA [None]
